FAERS Safety Report 4756798-6 (Version None)
Quarter: 2005Q3

REPORT INFORMATION
  Report Type: 
  Country: None (occurrence: None)
  Receive Date: 20050830
  Receipt Date: 20050518
  Transmission Date: 20060218
  Serious: Yes (Hospitalization)
  Sender: FDA-Public Use
  Company Number: US-BRISTOL-MYERS SQUIBB COMPANY-12974440

PATIENT
  Age: 62 Year
  Sex: Male
  Weight: 77 kg

DRUGS (3)
  1. ERBITUX [Suspect]
     Indication: RECTAL CANCER METASTATIC
     Dosage: 1ST ERBITUX INFUSION ADMINISTERED ON 14-MAR-2005.
     Route: 042
     Dates: start: 20050516, end: 20050516
  2. CAPECITABINE [Suspect]
     Indication: RECTAL CANCER METASTATIC
     Dosage: 1ST ADMINISTERED 14-MAR-2005. 500 MG/150 MG (1800 MG BID PO X 14 DAYS). INTERRUPTED ON 13-MAY-2005.
     Route: 048
     Dates: start: 20050512, end: 20050512
  3. IRINOTECAN HCL [Suspect]
     Indication: RECTAL CANCER METASTATIC
     Dosage: 1ST IRINOTECAN INFUSION ADMINISTERED ON 14-MAR-2005. INTERRUPTED (DATE NOT REPORTED).
     Route: 042
     Dates: start: 20050503, end: 20050503

REACTIONS (5)
  - ASTHENIA [None]
  - DEHYDRATION [None]
  - GASTROENTERITIS [None]
  - HYPOMAGNESAEMIA [None]
  - INAPPROPRIATE SCHEDULE OF DRUG ADMINISTRATION [None]
